FAERS Safety Report 10455467 (Version 2)
Quarter: 2014Q4

REPORT INFORMATION
  Report Type: Spontaneous
  Country: DE (occurrence: DE)
  Receive Date: 20140916
  Receipt Date: 20141112
  Transmission Date: 20150528
  Serious: Yes (Death, Hospitalization, Other)
  Sender: FDA-Public Use
  Company Number: DE-009507513-1409DEU005903

PATIENT
  Age: 80 Year
  Sex: Female

DRUGS (5)
  1. JANUMET [Suspect]
     Active Substance: METFORMIN HYDROCHLORIDE\SITAGLIPTIN PHOSPHATE
     Indication: TYPE 2 DIABETES MELLITUS
     Dosage: 1 DF DOSAGE FORM TWICE A DAY / TOTAL DAILY DOSE: 2000MG/100MG
     Route: 048
     Dates: start: 20140626, end: 2014
  2. LISIBETA [Concomitant]
     Indication: HYPERTENSION
     Dosage: 20MG BID
     Route: 048
  3. SERTRALINE HYDROCHLORIDE. [Concomitant]
     Active Substance: SERTRALINE HYDROCHLORIDE
     Indication: DEPRESSION
     Dosage: TWO AND A HALF A DAY / TOTAL DAILY DOSE: 250MG
     Route: 048
  4. TOREM [Concomitant]
     Active Substance: TORSEMIDE
     Indication: CARDIAC FAILURE
     Dosage: 20 MG TWICE A DAY
     Route: 048
  5. SPIRONOLACTONE. [Concomitant]
     Active Substance: SPIRONOLACTONE
     Indication: CARDIAC FAILURE
     Dosage: 1 DF DOSAGE FORM EVERY DAY/ 25 MG ONCE A DAY
     Route: 048

REACTIONS (12)
  - Hypovolaemic shock [Unknown]
  - Respiratory disorder [Unknown]
  - Nausea [Unknown]
  - Cardiomegaly [Unknown]
  - General physical health deterioration [Unknown]
  - Coma acidotic [Unknown]
  - Pleural effusion [Unknown]
  - Death [Fatal]
  - Acute kidney injury [Unknown]
  - Cardiac disorder [Unknown]
  - Lactic acidosis [Unknown]
  - Aortic valve sclerosis [Unknown]

NARRATIVE: CASE EVENT DATE: 201408
